FAERS Safety Report 5892372-6 (Version None)
Quarter: 2008Q3

REPORT INFORMATION
  Report Type: 
  Country: None (occurrence: None)
  Receive Date: 20080918
  Receipt Date: 20080918
  Transmission Date: 20090109
  Serious: Yes (Hospitalization)
  Sender: FDA-Public Use
  Company Number: None

PATIENT
  Age: 57 Year
  Sex: Female
  Weight: 91 kg

DRUGS (11)
  1. PREMARIN [Suspect]
     Indication: MENOPAUSAL SYMPTOMS
     Dosage: PO
     Route: 048
  2. HYDROCHLOROTHIAZIDE [Concomitant]
  3. LOVASTATIN [Concomitant]
  4. ELAVIL [Concomitant]
  5. GABAPENTIN [Concomitant]
  6. IMITREX [Concomitant]
  7. ADVAIR DISKUS 100/50 [Concomitant]
  8. ALBUTEROL [Concomitant]
  9. TRAZODONE HCL [Concomitant]
  10. PROTONIX [Concomitant]
  11. SINGULAIR [Concomitant]

REACTIONS (5)
  - ATELECTASIS [None]
  - HAEMOPTYSIS [None]
  - PLEURAL EFFUSION [None]
  - PULMONARY EMBOLISM [None]
  - TENDERNESS [None]
